FAERS Safety Report 21972788 (Version 4)
Quarter: 2024Q2

REPORT INFORMATION
  Report Type: Spontaneous
  Country: CZ (occurrence: CZ)
  Receive Date: 20230209
  Receipt Date: 20240508
  Transmission Date: 20240716
  Serious: Yes (Other)
  Sender: FDA-Public Use
  Company Number: CZ-PFIZER INC-PV202300021921

PATIENT
  Age: 59 Year
  Sex: Male

DRUGS (3)
  1. SOLU-MEDROL [Suspect]
     Active Substance: METHYLPREDNISOLONE SODIUM SUCCINATE
     Indication: Rehabilitation therapy
     Dosage: 10-40 MG PER DAY
  2. SOLU-MEDROL [Suspect]
     Active Substance: METHYLPREDNISOLONE SODIUM SUCCINATE
     Indication: Acute respiratory distress syndrome
  3. PREDNISONE [Suspect]
     Active Substance: PREDNISONE
     Dosage: 4 MONTHS AFTER TRANSPLANTATION
     Route: 048

REACTIONS (2)
  - Osteoporosis [Unknown]
  - Femoral neck fracture [Unknown]
